FAERS Safety Report 5810504-2 (Version None)
Quarter: 2008Q3

REPORT INFORMATION
  Report Type: 
  Country: None (occurrence: None)
  Receive Date: 20080715
  Receipt Date: 20080709
  Transmission Date: 20090109
  Serious: Yes (Hospitalization)
  Sender: FDA-Public Use
  Company Number: US-ASTRAZENECA-2008UW13760

PATIENT
  Sex: Female

DRUGS (1)
  1. METOPROLOL [Suspect]
     Route: 048

REACTIONS (1)
  - MALAISE [None]
